FAERS Safety Report 9654431 (Version 2)
Quarter: 2013Q4

REPORT INFORMATION
  Report Type: Spontaneous
  Country: GB (occurrence: GB)
  Receive Date: 20131029
  Receipt Date: 20131118
  Transmission Date: 20140711
  Serious: Yes (Hospitalization, Disabling)
  Sender: FDA-Public Use
  Company Number: PHFR2013GB006048

PATIENT
  Age: 47 Year
  Sex: Female
  Weight: 75.3 kg

DRUGS (2)
  1. CLOZAPINE [Suspect]
     Dosage: 500 MG, QD
     Route: 048
     Dates: end: 201309
  2. AMISULPRIDE [Suspect]
     Dosage: 200 MG, QD
     Route: 048
     Dates: end: 201309

REACTIONS (2)
  - Subarachnoid haemorrhage [Recovering/Resolving]
  - Brain injury [Recovering/Resolving]
